FAERS Safety Report 9968034 (Version 1)
Quarter: 2014Q1

REPORT INFORMATION
  Report Type: Report from Study
  Country: US (occurrence: US)
  Receive Date: 20140306
  Receipt Date: 20140306
  Transmission Date: 20141002
  Serious: No
  Sender: FDA-Public Use
  Company Number: US-ABBVIE-13P-163-1142070-00

PATIENT
  Age: 55 Year
  Sex: Male

DRUGS (19)
  1. HUMIRA [Suspect]
     Indication: CROHN^S DISEASE
     Dates: start: 20130815
  2. HUMIRA [Suspect]
     Dates: start: 20130829
  3. LANTUS [Concomitant]
     Indication: DIABETES MELLITUS
  4. NOVALOG FAST ACTING INSULIN [Concomitant]
     Indication: DIABETES MELLITUS
     Dosage: 4-5 TIMES A DAYS AS A ^BULLET AND THEN A SLIDING SCALE, FOR A TOTAL OF 2-40 UNITS DAILY
  5. LIPITOR [Concomitant]
     Indication: PRODUCT USED FOR UNKNOWN INDICATION
  6. DIOVAN HCT [Concomitant]
     Indication: PRODUCT USED FOR UNKNOWN INDICATION
     Dosage: 320-12.5 MG
  7. AMLODIPINE [Concomitant]
     Indication: PRODUCT USED FOR UNKNOWN INDICATION
  8. PROTONIX [Concomitant]
     Indication: GASTROOESOPHAGEAL REFLUX DISEASE
  9. IMURAN [Concomitant]
     Indication: PRODUCT USED FOR UNKNOWN INDICATION
  10. PENTASA [Concomitant]
     Indication: PRODUCT USED FOR UNKNOWN INDICATION
  11. PAXIL [Concomitant]
     Indication: PRODUCT USED FOR UNKNOWN INDICATION
  12. KLONOPIN [Concomitant]
     Indication: PRODUCT USED FOR UNKNOWN INDICATION
  13. HYDROCODONE [Concomitant]
     Indication: ABDOMINAL PAIN
     Dosage: 5/325 MG
  14. CALCIUM VIT D [Concomitant]
     Indication: PRODUCT USED FOR UNKNOWN INDICATION
  15. VITAMIN D [Concomitant]
     Indication: PRODUCT USED FOR UNKNOWN INDICATION
  16. MULTI-VITAMINS VITAFIT [Concomitant]
     Indication: PRODUCT USED FOR UNKNOWN INDICATION
  17. B-12 [Concomitant]
     Indication: PRODUCT USED FOR UNKNOWN INDICATION
  18. ENTOCORT [Concomitant]
     Indication: PRODUCT USED FOR UNKNOWN INDICATION
     Dates: start: 201307, end: 20130830
  19. ENTOCORT [Concomitant]
     Dates: start: 20130830

REACTIONS (8)
  - Dyspepsia [Not Recovered/Not Resolved]
  - Gastric dilatation [Not Recovered/Not Resolved]
  - Chest discomfort [Not Recovered/Not Resolved]
  - Joint swelling [Not Recovered/Not Resolved]
  - Blister [Not Recovered/Not Resolved]
  - Visual impairment [Not Recovered/Not Resolved]
  - Dermatitis [Not Recovered/Not Resolved]
  - Nausea [Not Recovered/Not Resolved]
